FAERS Safety Report 25950629 (Version 3)
Quarter: 2025Q4

REPORT INFORMATION
  Report Type: Spontaneous
  Country: US (occurrence: US)
  Receive Date: 20251023
  Receipt Date: 20251222
  Transmission Date: 20260118
  Serious: Yes (Hospitalization, Other)
  Sender: ABBVIE
  Company Number: US-ABBVIE-6515216

PATIENT
  Age: 65 Year
  Sex: Female
  Weight: 71.213 kg

DRUGS (7)
  1. DIVALPROEX SODIUM [Suspect]
     Active Substance: DIVALPROEX SODIUM
     Indication: Bipolar disorder
     Dosage: 3 TIME A DAY AT BED TIME,  ER, FORM STRENGTH: 250 MILLIGRAM
     Route: 048
     Dates: start: 1998, end: 201111
  2. DIVALPROEX SODIUM [Suspect]
     Active Substance: DIVALPROEX SODIUM
     Indication: Bipolar disorder
     Dosage: 3 TIME A DAY AT BED TIME,  ER, FORM STRENGTH: 250 MILLIGRAM
     Route: 048
     Dates: start: 201212
  3. DIVALPROEX SODIUM [Suspect]
     Active Substance: DIVALPROEX SODIUM
     Indication: Bipolar disorder
     Dosage: 3 TIME A DAY AT BED TIME,  ER, FORM STRENGTH: 250 MILLIGRAM
     Route: 048
     Dates: start: 2013
  4. MIRABEGRON [Concomitant]
     Active Substance: MIRABEGRON
     Indication: Hypertonic bladder
  5. DIVALPROEX SODIUM [Suspect]
     Active Substance: DIVALPROEX SODIUM
     Indication: Bipolar disorder
     Dosage: 3 TIME A DAY AT BED TIME, (UPSHER-SMITH), FORM STRENGTH: 250 MILLIGRAM
     Route: 048
  6. GLEEVEC [Suspect]
     Active Substance: IMATINIB MESYLATE
     Indication: Gastrointestinal stromal tumour
     Route: 065
  7. DIVALPROEX SODIUM [Suspect]
     Active Substance: DIVALPROEX SODIUM
     Indication: Bipolar disorder
     Dosage: 3 TIME A DAY AT BED TIME,  (UNKNOWN MANUFACTURER), FREQUENCY TEXT: UNKNOWN
     Route: 048

REACTIONS (8)
  - Gastrointestinal stromal tumour [Recovered/Resolved]
  - Hospitalisation [Recovered/Resolved]
  - Panic attack [Recovered/Resolved]
  - Mobility decreased [Unknown]
  - Tremor [Recovered/Resolved]
  - Deafness unilateral [Not Recovered/Not Resolved]
  - Suicidal ideation [Recovered/Resolved]
  - Dyspnoea [Recovered/Resolved]

NARRATIVE: CASE EVENT DATE: 20100101
